FAERS Safety Report 4330194-8 (Version None)
Quarter: 2004Q2

REPORT INFORMATION
  Report Type: 
  Country: None (occurrence: None)
  Receive Date: 20040401
  Receipt Date: 20040330
  Transmission Date: 20050107
  Serious: Yes (Other)
  Sender: FDA-Public Use
  Company Number: 04-03-0468

PATIENT
  Age: 52 Year
  Sex: Female

DRUGS (2)
  1. CLOZAPINE [Suspect]
     Indication: SCHIZOPHRENIA
     Dosage: 500MG QD ORAL
     Route: 048
     Dates: start: 20031001
  2. CHEMOTHERAPY UNKNOWN [Suspect]
     Indication: CARCINOMA

REACTIONS (2)
  - CARCINOMA [None]
  - WHITE BLOOD CELL COUNT DECREASED [None]
